FAERS Safety Report 9153633 (Version 2)
Quarter: 2013Q2

REPORT INFORMATION
  Report Type: Spontaneous
  Country: US (occurrence: US)
  Receive Date: 20130311
  Receipt Date: 20130404
  Transmission Date: 20140414
  Serious: Yes (Death)
  Sender: FDA-Public Use
  Company Number: PHEH2013US005541

PATIENT
  Sex: Male

DRUGS (1)
  1. EXJADE [Suspect]
     Dosage: 1000 MG, UNK
     Route: 048

REACTIONS (5)
  - Prostate cancer metastatic [Fatal]
  - Cerebral haemorrhage [Fatal]
  - Fall [Fatal]
  - Thrombocytopenia [Fatal]
  - Bone disorder [Unknown]
